FAERS Safety Report 24884101 (Version 5)
Quarter: 2025Q3

REPORT INFORMATION
  Report Type: Spontaneous
  Country: JP (occurrence: JP)
  Receive Date: 20250124
  Receipt Date: 20250809
  Transmission Date: 20251021
  Serious: Yes (Death, Other)
  Sender: ALEXION PHARMACEUTICALS
  Company Number: JP-ASTRAZENECA-250006419_011620_P_1

PATIENT
  Age: 60 Year
  Sex: Female
  Weight: 62 kg

DRUGS (7)
  1. LYNPARZA [Suspect]
     Active Substance: OLAPARIB
     Indication: Ovarian cancer
     Dosage: 300 MILLIGRAM, BID
     Dates: start: 20211021, end: 20220714
  2. LYNPARZA [Suspect]
     Active Substance: OLAPARIB
     Dosage: 300 MILLIGRAM, BID
     Dates: start: 20220728, end: 20220929
  3. LYNPARZA [Suspect]
     Active Substance: OLAPARIB
     Dosage: 300 MILLIGRAM, BID
     Dates: start: 20221013, end: 20230111
  4. LYNPARZA [Suspect]
     Active Substance: OLAPARIB
     Dosage: 250 MILLIGRAM, BID
     Dates: start: 20230131, end: 20240307
  5. LYNPARZA [Suspect]
     Active Substance: OLAPARIB
     Dosage: 250 MILLIGRAM, BID
     Dates: start: 20240321, end: 20240627
  6. LYNPARZA [Suspect]
     Active Substance: OLAPARIB
     Dosage: 200 MILLIGRAM, BID
     Dates: start: 20240710, end: 20240918
  7. BEVACIZUMAB [Concomitant]
     Active Substance: BEVACIZUMAB
     Indication: Ovarian cancer
     Dosage: 950 MILLIGRAM, Q3W
     Dates: start: 20210706, end: 20221027

REACTIONS (3)
  - Myelofibrosis [Fatal]
  - Anaemia [Recovered/Resolved]
  - Neutrophil count decreased [Not Recovered/Not Resolved]

NARRATIVE: CASE EVENT DATE: 20220714
